FAERS Safety Report 5406658-2 (Version None)
Quarter: 2007Q3

REPORT INFORMATION
  Report Type: 
  Country: None (occurrence: None)
  Receive Date: 20070806
  Receipt Date: 20070730
  Transmission Date: 20080115
  Serious: Yes (Death, Hospitalization)
  Sender: FDA-Public Use
  Company Number: AR-PFIZER INC-2007063259

PATIENT
  Sex: Male

DRUGS (1)
  1. SUTENT [Suspect]
     Indication: RENAL CELL CARCINOMA STAGE UNSPECIFIED

REACTIONS (6)
  - BLOOD PRESSURE INCREASED [None]
  - DEATH [None]
  - DISEASE PROGRESSION [None]
  - HAEMATURIA [None]
  - PAIN [None]
  - RENAL CELL CARCINOMA STAGE UNSPECIFIED [None]
